FAERS Safety Report 22081104 (Version 2)
Quarter: 2023Q1

REPORT INFORMATION
  Report Type: Report from Study
  Country: CA (occurrence: CA)
  Receive Date: 20230309
  Receipt Date: 20230314
  Transmission Date: 20230417
  Serious: Yes (Death)
  Sender: FDA-Public Use
  Company Number: CA-BEH-2023156313

PATIENT
  Age: 54 Year
  Sex: Male
  Weight: 54.422 kg

DRUGS (1)
  1. HIZENTRA [Suspect]
     Active Substance: HUMAN IMMUNOGLOBULIN G
     Indication: Primary immunodeficiency syndrome
     Dosage: 10 GRAM, QW
     Route: 065
     Dates: start: 20220221

REACTIONS (1)
  - Death [Fatal]

NARRATIVE: CASE EVENT DATE: 20221003
